FAERS Safety Report 21130296 (Version 1)
Quarter: 2022Q3

REPORT INFORMATION
  Report Type: Spontaneous
  Country: CA (occurrence: CA)
  Receive Date: 20220726
  Receipt Date: 20220726
  Transmission Date: 20221027
  Serious: Yes (Other)
  Sender: FDA-Public Use
  Company Number: CA-TEVA-2022-CA-2057043

PATIENT
  Age: 54 Year
  Sex: Female
  Weight: 58 kg

DRUGS (3)
  1. OLANZAPINE [Suspect]
     Active Substance: OLANZAPINE
     Indication: Nausea
     Dosage: 2.5 MILLIGRAM DAILY;
     Route: 048
  2. EMEND [Concomitant]
     Active Substance: APREPITANT
     Indication: Product used for unknown indication
  3. ONDANSETRON [Concomitant]
     Active Substance: ONDANSETRON
     Indication: Product used for unknown indication

REACTIONS (6)
  - Anticholinergic syndrome [Unknown]
  - Dry mouth [Unknown]
  - Dysuria [Unknown]
  - Feeling abnormal [Unknown]
  - Seizure [Unknown]
  - Speech disorder [Unknown]
